FAERS Safety Report 7123493-8 (Version None)
Quarter: 2010Q4

REPORT INFORMATION
  Report Type: 
  Country: None (occurrence: None)
  Receive Date: 20101125
  Receipt Date: 20101119
  Transmission Date: 20110411
  Serious: No
  Sender: FDA-Public Use
  Company Number: US-BIOGENIDEC-2010BI041068

PATIENT
  Age: 42 Year
  Sex: Female
  Weight: 60 kg

DRUGS (3)
  1. AVONEX [Suspect]
     Indication: MULTIPLE SCLEROSIS
     Route: 030
     Dates: start: 20100530
  2. AVONEX [Suspect]
     Route: 030
     Dates: start: 20040806, end: 20050429
  3. AVONEX [Suspect]
     Route: 030
     Dates: start: 20061001, end: 20080702

REACTIONS (6)
  - BACK PAIN [None]
  - ESCHERICHIA TEST POSITIVE [None]
  - FOOT FRACTURE [None]
  - HYPOTHYROIDISM [None]
  - INFLUENZA LIKE ILLNESS [None]
  - PALPITATIONS [None]
